FAERS Safety Report 13894211 (Version 2)
Quarter: 2017Q4

REPORT INFORMATION
  Report Type: Spontaneous
  Country: US (occurrence: US)
  Receive Date: 20170822
  Receipt Date: 20171013
  Transmission Date: 20180320
  Serious: Yes (Hospitalization, Other)
  Sender: FDA-Public Use
  Company Number: US-ASTRAZENECA-2017SE85613

PATIENT
  Age: 22544 Day
  Sex: Male
  Weight: 114.3 kg

DRUGS (29)
  1. GLIPIZIDE. [Concomitant]
     Active Substance: GLIPIZIDE
     Indication: TYPE 2 DIABETES MELLITUS
     Route: 048
     Dates: start: 2006
  2. ATENOLOL. [Concomitant]
     Active Substance: ATENOLOL
     Route: 048
  3. KEPPRA [Concomitant]
     Active Substance: LEVETIRACETAM
     Route: 048
  4. LIRAGLUTIDE [Concomitant]
     Active Substance: LIRAGLUTIDE
     Dosage: 18MG/3ML INJECTION 1.8MG DAILY
  5. CIALIS [Concomitant]
     Active Substance: TADALAFIL
     Route: 048
  6. BYETTA [Suspect]
     Active Substance: EXENATIDE
     Indication: TYPE 2 DIABETES MELLITUS
     Route: 058
     Dates: start: 2006
  7. TOUJEO [Concomitant]
     Active Substance: INSULIN GLARGINE
     Indication: TYPE 2 DIABETES MELLITUS
     Route: 058
     Dates: start: 2016
  8. CLOBETASOL PROPIONATE. [Concomitant]
     Active Substance: CLOBETASOL PROPIONATE
     Dosage: THIN FILM TO AFFECTED AREA BID PRN
  9. TEMOVATE [Concomitant]
     Active Substance: CLOBETASOL PROPIONATE
     Dosage: APPLY BY TOPICAL ROUTE 2 TIMES EVEY DAY A THIN LAYER TO THE AFFECTED AREA
     Route: 061
  10. VITAMIN B6 [Concomitant]
     Active Substance: PYRIDOXINE HYDROCHLORIDE
  11. ACTOS [Concomitant]
     Active Substance: PIOGLITAZONE HYDROCHLORIDE
     Indication: TYPE 2 DIABETES MELLITUS
     Route: 048
     Dates: start: 2006
  12. GLUCOTROL [Concomitant]
     Active Substance: GLIPIZIDE
     Route: 048
  13. METFORMIN HYDROCHLORIDE. [Concomitant]
     Active Substance: METFORMIN HYDROCHLORIDE
  14. METFORMIN [Concomitant]
     Active Substance: METFORMIN HYDROCHLORIDE
     Indication: TYPE 2 DIABETES MELLITUS
     Route: 048
     Dates: start: 2006
  15. METFORMIN [Concomitant]
     Active Substance: METFORMIN HYDROCHLORIDE
     Indication: TYPE 2 DIABETES MELLITUS
     Route: 048
  16. DEXEDRINE [Concomitant]
     Active Substance: DEXTROAMPHETAMINE SULFATE
     Route: 048
  17. B-50 COMPLEX [Concomitant]
     Route: 048
  18. SIMVASTATIN. [Concomitant]
     Active Substance: SIMVASTATIN
     Route: 048
  19. VICTOZA [Concomitant]
     Active Substance: LIRAGLUTIDE
  20. CELEBREX [Concomitant]
     Active Substance: CELECOXIB
  21. ZYRTEC [Concomitant]
     Active Substance: CETIRIZINE HYDROCHLORIDE
     Route: 048
  22. CLOPIDOGREL [Concomitant]
     Active Substance: CLOPIDOGREL BISULFATE
     Route: 048
  23. LISINOPRIL. [Concomitant]
     Active Substance: LISINOPRIL
     Route: 048
  24. MULTIVITAMIN [Concomitant]
     Active Substance: VITAMINS
     Route: 048
  25. TOUJEO [Concomitant]
     Active Substance: INSULIN GLARGINE
     Indication: TYPE 2 DIABETES MELLITUS
     Dosage: 300 UNIT/ML (1.5 ML) SUBCUTANEOUS INSULIN PEN
     Route: 058
  26. GLUCOPHAGE [Concomitant]
     Active Substance: METFORMIN HYDROCHLORIDE
  27. OXYCONTIN [Concomitant]
     Active Substance: OXYCODONE HYDROCHLORIDE
     Route: 048
  28. ASPIRIN. [Concomitant]
     Active Substance: ASPIRIN
     Route: 048
  29. PIOGLITAZONE. [Concomitant]
     Active Substance: PIOGLITAZONE
     Route: 048

REACTIONS (12)
  - Type V hyperlipidaemia [Unknown]
  - Cellulitis of male external genital organ [Unknown]
  - Weight decreased [Unknown]
  - Arthralgia [Unknown]
  - Gastrooesophageal reflux disease [Unknown]
  - Product quality issue [Unknown]
  - Acute myocardial infarction [Recovering/Resolving]
  - Coronary artery stenosis [Unknown]
  - Erectile dysfunction [Unknown]
  - Drug dose omission [Unknown]
  - Arteriosclerosis coronary artery [Unknown]
  - Gastrointestinal haemorrhage [Unknown]

NARRATIVE: CASE EVENT DATE: 20160602
